FAERS Safety Report 6989153-9 (Version None)
Quarter: 2010Q3

REPORT INFORMATION
  Report Type: 
  Country: None (occurrence: None)
  Receive Date: 20100916
  Receipt Date: 20090803
  Transmission Date: 20110219
  Serious: Yes (Other)
  Sender: FDA-Public Use
  Company Number: US-PFIZER INC-2009249859

PATIENT
  Sex: Female
  Weight: 70.295 kg

DRUGS (14)
  1. LYRICA [Suspect]
     Indication: FIBROMYALGIA
     Dosage: 75 MG, 2X/DAY
  2. LYRICA [Suspect]
     Indication: GRAND MAL CONVULSION
     Dosage: 50 MG, 1X/DAY
     Dates: start: 20090601
  3. TEGRETOL [Concomitant]
     Dosage: UNK
  4. LEVOTHYROXINE SODIUM [Concomitant]
     Dosage: UNK
  5. VERAPAMIL HYDROCHLORIDE [Concomitant]
     Dosage: UNK
  6. METOPROLOL [Concomitant]
     Dosage: UNK
  7. WARFARIN SODIUM [Concomitant]
     Dosage: UNK
  8. ACETYLSALICYLIC ACID [Concomitant]
     Dosage: UNK
  9. CALCIUM [Concomitant]
     Dosage: UNK
  10. SIMVASTATIN [Concomitant]
     Dosage: UNK
  11. TYLENOL PM [Concomitant]
     Dosage: UNK
  12. FIORINAL [Concomitant]
     Dosage: 75 MG, UNK
  13. STOOL SOFTENER [Concomitant]
     Dosage: UNK
  14. FIBERCON [Concomitant]
     Dosage: UNK

REACTIONS (6)
  - BLOOD SODIUM DECREASED [None]
  - CATHETERISATION CARDIAC [None]
  - FEELING ABNORMAL [None]
  - HUNGER [None]
  - SOMNOLENCE [None]
  - WEIGHT INCREASED [None]
